FAERS Safety Report 7519289-5 (Version None)
Quarter: 2011Q2

REPORT INFORMATION
  Report Type: 
  Country: None (occurrence: None)
  Receive Date: 20110602
  Receipt Date: 20110525
  Transmission Date: 20111010
  Serious: Yes (Hospitalization)
  Sender: FDA-Public Use
  Company Number: NO-TEVA-283362ISR

PATIENT
  Sex: Female

DRUGS (10)
  1. METFORMIN HCL [Suspect]
     Indication: TYPE 2 DIABETES MELLITUS
     Route: 048
     Dates: start: 20060622
  2. IBUPROFEN [Suspect]
     Indication: GINGIVITIS
     Route: 048
     Dates: start: 20081215
  3. SAXAGLIPTIN [Suspect]
     Indication: TYPE 2 DIABETES MELLITUS
     Dates: start: 20080624
  4. GLIPIZIDE [Suspect]
     Indication: TYPE 2 DIABETES MELLITUS
     Dates: start: 20080624
  5. PINEX FORTE [Concomitant]
     Dates: start: 20081022
  6. PARACET [Concomitant]
     Dates: start: 20000601
  7. PLACEBO [Concomitant]
     Indication: TYPE 2 DIABETES MELLITUS
     Dates: start: 20080624
  8. ASPIRIN [Suspect]
     Indication: AORTIC ANEURYSM
     Route: 048
     Dates: start: 20051128
  9. TRAMADOL HCL [Concomitant]
     Dates: start: 20090401
  10. SIMVASTATIN [Concomitant]
     Dates: start: 20060622

REACTIONS (1)
  - GASTRIC ULCER [None]
